FAERS Safety Report 9379588 (Version 5)
Quarter: 2013Q3

REPORT INFORMATION
  Report Type: Spontaneous
  Country: DE (occurrence: DE)
  Receive Date: 20130702
  Receipt Date: 20130904
  Transmission Date: 20140515
  Serious: Yes (Hospitalization)
  Sender: FDA-Public Use
  Company Number: DE-VERTEX PHARMACEUTICALS INC-2013-007611

PATIENT
  Age: 74 Year
  Sex: Female

DRUGS (4)
  1. INCIVO [Suspect]
     Indication: CHRONIC HEPATITIS C
     Dosage: (2250 MG 2X)
     Route: 048
     Dates: start: 20130423, end: 20130617
  2. PEGINTERFERON ALFA 2A [Suspect]
     Indication: HIV INFECTION
     Dosage: DOSAGE FORM: SOLUTION FOR INJECTION
     Route: 058
     Dates: start: 20130423, end: 20130617
  3. PEGINTERFERON ALFA 2A [Suspect]
     Indication: CHRONIC HEPATITIS C
  4. RIBAVIRIN [Suspect]
     Indication: CHRONIC HEPATITIS C
     Dosage: DOSAGE FORM: TABLET, (1000 MG, 2X)
     Route: 048
     Dates: start: 20130423, end: 20130617

REACTIONS (1)
  - Transient ischaemic attack [Recovered/Resolved]
